FAERS Safety Report 6959569-5 (Version None)
Quarter: 2010Q3

REPORT INFORMATION
  Report Type: 
  Country: None (occurrence: None)
  Receive Date: 20100830
  Receipt Date: 20100813
  Transmission Date: 20110219
  Serious: Yes (Hospitalization)
  Sender: FDA-Public Use
  Company Number: 2010002817

PATIENT
  Age: 53 Year
  Sex: Female
  Weight: 69.4003 kg

DRUGS (5)
  1. ERLOTINIB HYDROCHLORIDE [Suspect]
     Indication: SQUAMOUS CELL CARCINOMA
     Dosage: ORAL
     Route: 048
     Dates: start: 20100628
  2. ERLOTINIB HYDROCHLORIDE [Suspect]
     Indication: TONSIL CANCER
     Dosage: ORAL
     Route: 048
     Dates: start: 20100628
  3. PROMETHAZINE HYDROCHLORIDE (PROMETHAZINE HYDROCHLORIDE) [Concomitant]
  4. MORPHINE SULFATE INJ [Concomitant]
  5. PERCOCET [Concomitant]

REACTIONS (1)
  - DEVICE MALFUNCTION [None]
